FAERS Safety Report 9453058 (Version 4)
Quarter: 2013Q3

REPORT INFORMATION
  Report Type: Spontaneous
  Country: US (occurrence: US)
  Receive Date: 20130812
  Receipt Date: 20130913
  Transmission Date: 20140515
  Serious: Yes (Hospitalization, Other)
  Sender: FDA-Public Use
  Company Number: US-BAXTER-2013BAX031330

PATIENT
  Sex: Male

DRUGS (8)
  1. GAMMAGARD LIQUID [Suspect]
     Indication: MULTIFOCAL MOTOR NEUROPATHY
     Route: 042
     Dates: start: 20130524, end: 20130524
  2. GAMMAGARD LIQUID [Suspect]
     Route: 042
     Dates: start: 20130524, end: 20130524
  3. GAMUNEX [Suspect]
     Indication: MULTIFOCAL MOTOR NEUROPATHY
     Route: 042
     Dates: start: 2013, end: 2013
  4. PRIVIGEN [Suspect]
     Indication: MULTIFOCAL MOTOR NEUROPATHY
     Route: 042
     Dates: start: 2013, end: 2013
  5. LISINOPRIL/HCTZ [Concomitant]
     Indication: PRODUCT USED FOR UNKNOWN INDICATION
     Dosage: 10/12.5 MG
     Route: 048
  6. BENADRYL [Concomitant]
     Indication: PREMEDICATION
     Dosage: PRIOR TO IVIG AS NEEDED
     Route: 048
  7. TYLENOL [Concomitant]
     Indication: PREMEDICATION
     Dosage: PRIOR TO IVIG AS NEEDED
     Route: 048
  8. SOLU-MEDROL [Concomitant]
     Indication: PREMEDICATION
     Dosage: PRIOR TO IVIG THERAPY AS NEEDED
     Route: 042

REACTIONS (3)
  - Stevens-Johnson syndrome [Unknown]
  - Rash pruritic [Not Recovered/Not Resolved]
  - Rash generalised [Not Recovered/Not Resolved]
